FAERS Safety Report 9222170 (Version 3)
Quarter: 2013Q3

REPORT INFORMATION
  Report Type: Not Available
  Country: FR (occurrence: FR)
  Receive Date: 20130410
  Receipt Date: 20130808
  Transmission Date: 20140515
  Serious: Yes (Other)
  Sender: FDA-Public Use
  Company Number: FR-ASTELLAS-2013US003687

PATIENT
  Age: 37 Year
  Sex: Male

DRUGS (19)
  1. AMBISOME [Suspect]
     Indication: PRODUCT USED FOR UNKNOWN INDICATION
     Dosage: 300 MG, UID/QD
     Route: 042
     Dates: start: 20130203, end: 20130214
  2. FORTUM /00559701/ [Suspect]
     Indication: PRODUCT USED FOR UNKNOWN INDICATION
     Dosage: 6 G, UID/QD
     Route: 042
     Dates: start: 20130129, end: 20130217
  3. CYCLOPHOSPHAMIDE [Suspect]
     Indication: PRODUCT USED FOR UNKNOWN INDICATION
     Dosage: 1470 MG, UNKNOWN/D
     Route: 042
     Dates: start: 20130116, end: 20130130
  4. DAUNORUBICIN [Suspect]
     Indication: PRODUCT USED FOR UNKNOWN INDICATION
     Dosage: 98 MG, UID/QD
     Route: 042
     Dates: start: 20130116, end: 20130118
  5. DAUNORUBICIN [Suspect]
     Dosage: 59 MG, UID/QD
     Route: 042
     Dates: start: 20130130, end: 20130131
  6. ASPARAGINASE [Suspect]
     Indication: PRODUCT USED FOR UNKNOWN INDICATION
     Dosage: 11800 IU, UNKNOWN/D
     Route: 042
     Dates: start: 20130123, end: 20130208
  7. ASPARAGINASE [Suspect]
     Dosage: UNK
     Route: 065
  8. FLAGYL /00012501/ [Suspect]
     Indication: PRODUCT USED FOR UNKNOWN INDICATION
     Dosage: 1.5 G, UID/QD
     Route: 042
     Dates: start: 20130211, end: 20130218
  9. LEVOTHYROXINE                      /00068002/ [Concomitant]
     Indication: PRODUCT USED FOR UNKNOWN INDICATION
     Dosage: UNK
     Route: 065
  10. DEPAKOTE [Concomitant]
     Indication: PRODUCT USED FOR UNKNOWN INDICATION
     Dosage: UNK
     Route: 065
  11. ZYPREXA [Concomitant]
     Indication: PRODUCT USED FOR UNKNOWN INDICATION
     Dosage: UNK
     Route: 065
  12. VINCRISTINE [Concomitant]
     Indication: PRODUCT USED FOR UNKNOWN INDICATION
     Dosage: 8 MG, UNKNOWN/D
     Route: 042
     Dates: start: 20130116, end: 20130206
  13. LOXAPAC                            /00401801/ [Concomitant]
     Indication: PRODUCT USED FOR UNKNOWN INDICATION
     Dosage: UNK
     Route: 065
  14. ANDROCUR [Concomitant]
     Indication: PRODUCT USED FOR UNKNOWN INDICATION
     Dosage: UNK
     Route: 065
  15. PARKINANE [Concomitant]
     Indication: PRODUCT USED FOR UNKNOWN INDICATION
     Dosage: UNK
     Route: 065
  16. FOSAMAX [Concomitant]
     Indication: PRODUCT USED FOR UNKNOWN INDICATION
     Dosage: UNK
     Route: 065
  17. FORLAX                             /00754501/ [Concomitant]
     Indication: PRODUCT USED FOR UNKNOWN INDICATION
     Dosage: UNK
     Route: 065
  18. LANSOYL [Concomitant]
     Indication: PRODUCT USED FOR UNKNOWN INDICATION
     Dosage: UNK
     Route: 065
  19. PREDNISONE [Concomitant]
     Indication: PRODUCT USED FOR UNKNOWN INDICATION
     Dosage: UNK
     Route: 065
     Dates: start: 20130116, end: 20130129

REACTIONS (2)
  - Colitis [Recovered/Resolved]
  - Jaundice cholestatic [Recovering/Resolving]
